FAERS Safety Report 6844908-6 (Version None)
Quarter: 2010Q3

REPORT INFORMATION
  Report Type: 
  Country: None (occurrence: None)
  Receive Date: 20100713
  Receipt Date: 20100702
  Transmission Date: 20110219
  Serious: Yes (Hospitalization)
  Sender: FDA-Public Use
  Company Number: RB-04931-2010

PATIENT
  Sex: Female

DRUGS (2)
  1. SUBOXONE [Suspect]
     Indication: DRUG DEPENDENCE
     Dosage: (8 MG TID SUBLINGUAL), (24 MG UNKNOWN)
     Route: 060
     Dates: start: 20100303, end: 20100304
  2. SUBOXONE [Suspect]
     Indication: DRUG DEPENDENCE
     Dosage: (8 MG TID SUBLINGUAL), (24 MG UNKNOWN)
     Route: 060
     Dates: start: 20100317

REACTIONS (9)
  - ANAEMIA [None]
  - BLOOD TEST ABNORMAL [None]
  - CARBON DIOXIDE DECREASED [None]
  - DRUG DEPENDENCE [None]
  - DYSARTHRIA [None]
  - PNEUMONIA [None]
  - SOMNOLENCE [None]
  - STRESS [None]
  - WITHDRAWAL SYNDROME [None]
